FAERS Safety Report 5996142-X (Version None)
Quarter: 2008Q4

REPORT INFORMATION
  Report Type: 
  Country: None (occurrence: None)
  Receive Date: 20081212
  Receipt Date: 20081013
  Transmission Date: 20090506
  Serious: No
  Sender: FDA-Public Use
  Company Number: US-ABBOTT-08P-163-0481195-00

PATIENT
  Sex: Female

DRUGS (2)
  1. HUMIRA [Suspect]
     Indication: CROHN'S DISEASE
     Dosage: DAY 1
     Dates: start: 20081006
  2. HUMIRA [Suspect]
     Indication: RHEUMATOID ARTHRITIS

REACTIONS (3)
  - DIARRHOEA [None]
  - FAECES DISCOLOURED [None]
  - MUSCLE SPASMS [None]
